FAERS Safety Report 11572305 (Version 2)
Quarter: 2015Q4

REPORT INFORMATION
  Report Type: Spontaneous
  Country: US (occurrence: US)
  Receive Date: 20150916
  Receipt Date: 20151027
  Transmission Date: 20160304
  Serious: No
  Sender: FDA-Public Use
  Company Number: US-ELI_LILLY_AND_COMPANY-US200910002162

PATIENT
  Age: 66 Year
  Sex: Female
  Weight: 34.01 kg

DRUGS (2)
  1. FORTEO [Suspect]
     Active Substance: TERIPARATIDE
     Indication: OSTEOPOROSIS
     Dosage: UNK, UNKNOWN
     Dates: start: 20090911, end: 2009
  2. FORTEO [Suspect]
     Active Substance: TERIPARATIDE
     Dosage: UNK, UNKNOWN
     Dates: start: 2009

REACTIONS (5)
  - Injection site haemorrhage [Recovered/Resolved]
  - Nausea [Unknown]
  - Injection site bruising [Recovered/Resolved]
  - Anxiety [Unknown]
  - Injection site erythema [Unknown]

NARRATIVE: CASE EVENT DATE: 2009
